FAERS Safety Report 4604311-6 (Version None)
Quarter: 2005Q1

REPORT INFORMATION
  Report Type: 
  Country: None (occurrence: None)
  Receive Date: 20050215
  Receipt Date: 20041101
  Transmission Date: 20050727
  Serious: Yes (Death)
  Sender: FDA-Public Use
  Company Number: 351545

PATIENT
  Age: 66 Year
  Sex: Male
  Weight: 80.3 kg

DRUGS (1)
  1. PEGASYS [Suspect]
     Dosage: OTHER
     Dates: start: 20030813

REACTIONS (2)
  - DEATH [None]
  - RED BLOOD CELL COUNT DECREASED [None]
